FAERS Safety Report 24571862 (Version 1)
Quarter: 2024Q4

REPORT INFORMATION
  Report Type: Spontaneous
  Country: GB (occurrence: GB)
  Receive Date: 20241101
  Receipt Date: 20241101
  Transmission Date: 20250115
  Serious: Yes (Hospitalization, Other)
  Sender: TEVA
  Company Number: GB-MHRA-TPP7326945C9437151YC1729685503901

PATIENT
  Age: 51 Year
  Sex: Female
  Weight: 66 kg

DRUGS (7)
  1. RAMIPRIL [Suspect]
     Active Substance: RAMIPRIL
     Indication: Ill-defined disorder
     Route: 065
     Dates: start: 20241023
  2. BETAMETHASONE VALERATE [Concomitant]
     Active Substance: BETAMETHASONE VALERATE
     Indication: Ill-defined disorder
     Dosage: APPLY THINLY TWICE A DAY- THINLY, FOR 2 WEEKS O...
     Route: 065
     Dates: start: 20240807, end: 20240905
  3. LANSOPRAZOLE [Concomitant]
     Active Substance: LANSOPRAZOLE
     Indication: Ill-defined disorder
     Dosage: ONCE DAILY
     Route: 065
  4. MICONAZOLE [Concomitant]
     Active Substance: MICONAZOLE
     Indication: Ill-defined disorder
     Dosage: APPLY TWICE DAILY TO GROIN FOR 10 DAYS
     Route: 065
  5. AMLODIPINE [Concomitant]
     Active Substance: AMLODIPINE BESYLATE
     Indication: Ill-defined disorder
     Dosage: ONE TO BE TAKEN EACH DAY FOR BLOOD PRESSURE CON...
     Dates: start: 20220615, end: 20241010
  6. PREGABALIN [Concomitant]
     Active Substance: PREGABALIN
     Indication: Ill-defined disorder
     Dosage: TIME INTERVAL: 0.33333333 DAYS: TAKE ONE THREE TIMES A DAY
     Route: 065
  7. MINERAL OIL\PARAFFIN [Concomitant]
     Active Substance: MINERAL OIL\PARAFFIN
     Indication: Ill-defined disorder
     Dosage: USE IN GENEROUS AMOUNTS DAILY (USE EVERY HOUR)
     Route: 065
     Dates: start: 20240807, end: 20240919

REACTIONS (1)
  - Swelling face [Unknown]
